FAERS Safety Report 7086854-1 (Version None)
Quarter: 2010Q4

REPORT INFORMATION
  Report Type: 
  Country: None (occurrence: None)
  Receive Date: 20101105
  Receipt Date: 20101026
  Transmission Date: 20110411
  Serious: Yes (Other)
  Sender: FDA-Public Use
  Company Number: US-AMGEN LTD.-QUU441970

PATIENT

DRUGS (2)
  1. NPLATE [Suspect]
     Indication: IDIOPATHIC THROMBOCYTOPENIC PURPURA
     Dosage: 800 A?G, UNK
     Dates: start: 20090114, end: 20100223
  2. NPLATE [Suspect]
     Indication: THROMBOCYTOPENIA

REACTIONS (1)
  - MYELODYSPLASTIC SYNDROME [None]
